FAERS Safety Report 5171677-0 (Version None)
Quarter: 2006Q4

REPORT INFORMATION
  Report Type: 
  Country: None (occurrence: None)
  Receive Date: 20061213
  Receipt Date: 20061122
  Transmission Date: 20070319
  Serious: Yes (Death, Hospitalization)
  Sender: FDA-Public Use
  Company Number: KR-GILEAD-2006-0010704

PATIENT
  Age: 43 Year
  Sex: Male

DRUGS (6)
  1. HEPSERA [Suspect]
     Indication: HEPATITIS B
     Route: 048
     Dates: start: 20060523, end: 20060902
  2. LAMIVUDINE [Concomitant]
     Dates: start: 20050318, end: 20060902
  3. FUROSEMIDE [Concomitant]
     Dates: start: 20050318
  4. SPIRONOLACTONE [Concomitant]
     Dates: start: 20050318
  5. INDENOLOL [Concomitant]
     Dates: start: 20050318
  6. URSODEOXYCHOLIC ACID [Concomitant]
     Dates: start: 20060318

REACTIONS (2)
  - COMA HEPATIC [None]
  - HEPATIC CIRRHOSIS [None]
